FAERS Safety Report 10395902 (Version 1)
Quarter: 2014Q3

REPORT INFORMATION
  Report Type: Spontaneous
  Country: US (occurrence: None)
  Receive Date: 20140815
  Receipt Date: 20140815
  Transmission Date: 20150326
  Serious: Yes (Disabling, Other)
  Sender: FDA-Public Use
  Company Number: None

PATIENT
  Age: 44 Year
  Sex: Male
  Weight: 72.58 kg

DRUGS (1)
  1. ALBUTEROL HFA [Suspect]
     Active Substance: ALBUTEROL SULFATE
     Indication: ASTHMA
     Dosage: 2 PUFFS AS NEEDED INHALATION
     Route: 055
     Dates: start: 20140814

REACTIONS (4)
  - Adverse reaction [None]
  - Drug effect delayed [None]
  - Condition aggravated [None]
  - Product formulation issue [None]

NARRATIVE: CASE EVENT DATE: 20140814
